FAERS Safety Report 9291421 (Version 2)
Quarter: 2013Q3

REPORT INFORMATION
  Report Type: Report from Study
  Country: ZA (occurrence: ZA)
  Receive Date: 20130515
  Receipt Date: 20130725
  Transmission Date: 20140515
  Serious: Yes (Hospitalization)
  Sender: FDA-Public Use
  Company Number: ZA-WATSON-2013-08491

PATIENT
  Age: 61 Year
  Sex: Male

DRUGS (6)
  1. TRELSTAR (WATSON LABORATORIES) [Suspect]
     Indication: PROSTATE CANCER
     Dosage: ONCE EVERY SIX MONTHS
     Route: 058
     Dates: start: 20130304
  2. TRELSTAR (WATSON LABORATORIES) [Suspect]
     Dosage: ONCE EVERY 6 MONTHS
     Route: 058
     Dates: start: 20120917
  3. FELODIPIN [Concomitant]
     Indication: HYPERTENSION
     Dosage: UNK
     Route: 048
     Dates: start: 1997
  4. ADCO-QUININE DIHYDROCHLORIDE [Concomitant]
     Indication: HYPERTENSION
     Dosage: UNK
     Route: 048
     Dates: start: 1997
  5. METFORMIN [Concomitant]
     Indication: DIABETES MELLITUS
     Dosage: UNK
     Route: 048
     Dates: start: 1997
  6. MULTIVITAMINS [Concomitant]
     Indication: HYPERLIPIDAEMIA
     Dosage: UNK
     Route: 048
     Dates: start: 1997

REACTIONS (1)
  - Myocardial infarction [Recovered/Resolved]
